FAERS Safety Report 10432638 (Version 2)
Quarter: 2014Q3

REPORT INFORMATION
  Report Type: Report from Study
  Country: US (occurrence: US)
  Receive Date: 20140905
  Receipt Date: 20140918
  Transmission Date: 20150326
  Serious: Yes (Hospitalization, Other)
  Sender: FDA-Public Use
  Company Number: US-TAKEDA-2014MPI002341

PATIENT
  Age: 84 Year
  Sex: Female
  Weight: 68.48 kg

DRUGS (23)
  1. CELEXA [Concomitant]
     Active Substance: CITALOPRAM HYDROBROMIDE
     Dosage: 1 TAB, QD, EVERY MORNING
     Route: 048
     Dates: start: 20040528
  2. PREMARIN [Concomitant]
     Active Substance: ESTROGENS, CONJUGATED
     Dosage: VAGINALLY, DAILY
     Dates: start: 20080730
  3. ATIVAN [Concomitant]
     Active Substance: LORAZEPAM
     Dosage: 1-2 TAB, Q4HR AS NEEDED
     Route: 048
     Dates: start: 20140106
  4. MAGNESIUM [Concomitant]
     Active Substance: MAGNESIUM
     Dosage: 250 MG, UNK
     Dates: end: 20140604
  5. ZOFRAN                             /00955301/ [Concomitant]
     Active Substance: ONDANSETRON HYDROCHLORIDE
     Dosage: 1 TAB, Q8HR, PRN
     Route: 048
     Dates: start: 20110718
  6. SPIRIVA [Concomitant]
     Active Substance: TIOTROPIUM BROMIDE MONOHYDRATE
     Dosage: 18 MCG, QD
     Route: 050
     Dates: start: 20140528, end: 20140530
  7. KENALOG [Concomitant]
     Active Substance: TRIAMCINOLONE ACETONIDE
     Indication: PRURITUS
  8. LASIX [Concomitant]
     Active Substance: FUROSEMIDE
     Indication: LOCAL SWELLING
     Dosage: UNK, PRN
     Route: 048
     Dates: start: 20130712
  9. DESYREL [Concomitant]
     Active Substance: TRAZODONE HYDROCHLORIDE
     Dosage: 1-2 TAB, QD, NIGHTLY
     Route: 048
     Dates: start: 20130313
  10. XALATAN [Concomitant]
     Active Substance: LATANOPROST
     Dosage: 0.005 %, UNK
  11. ASPIRIN. [Concomitant]
     Active Substance: ASPIRIN
     Dosage: 81 MG, UNK
     Dates: start: 20060104
  12. CHOLECALCIFEROL [Concomitant]
     Active Substance: CHOLECALCIFEROL
     Dosage: 1 DF, QD
     Route: 048
     Dates: start: 20100222
  13. ADVAIR HFA [Concomitant]
     Active Substance: FLUTICASONE PROPIONATE\SALMETEROL XINAFOATE
     Dosage: 1 PUFF, BID
     Route: 050
     Dates: start: 20140528, end: 20140604
  14. AVAPRO [Concomitant]
     Active Substance: IRBESARTAN
     Dosage: 1 DF, QD
     Route: 048
     Dates: start: 20080528
  15. CARAFATE [Concomitant]
     Active Substance: SUCRALFATE
     Indication: NAUSEA
     Dosage: 1 TAB, Q4HR
     Route: 048
     Dates: start: 20130524
  16. VELCADE [Suspect]
     Active Substance: BORTEZOMIB
     Indication: PLASMA CELL MYELOMA
     Dosage: 1.3 MG/M2, 1/WEEK
     Route: 058
     Dates: start: 20140204, end: 20140520
  17. LENALIDOMIDE [Concomitant]
     Active Substance: LENALIDOMIDE
     Dosage: 15 MG, QD
     Route: 048
     Dates: start: 20140128
  18. DECADRON [Concomitant]
     Active Substance: DEXAMETHASONE
     Dosage: UNK
     Dates: start: 20140204, end: 20140604
  19. PROCHLORPERAZINE. [Concomitant]
     Active Substance: PROCHLORPERAZINE
     Indication: NAUSEA
     Dosage: 1 TAB, Q6HR AS NEEDED
     Route: 048
     Dates: start: 20140204
  20. DESOWEN [Concomitant]
     Active Substance: DESONIDE
     Dosage: UNK, BID, PRN
     Route: 061
     Dates: start: 20051114
  21. PRILOSEC [Concomitant]
     Active Substance: OMEPRAZOLE MAGNESIUM
     Dosage: 1 CAPSULE, QD
     Route: 048
     Dates: start: 20050606, end: 20140406
  22. KENALOG [Concomitant]
     Active Substance: TRIAMCINOLONE ACETONIDE
     Indication: DRY SKIN
     Dosage: PRN
     Route: 061
     Dates: start: 20130702, end: 20140604
  23. NORVASC [Concomitant]
     Active Substance: AMLODIPINE BESYLATE
     Dosage: 5 MG, QD
     Dates: start: 20050826

REACTIONS (2)
  - Asthma [Recovered/Resolved]
  - Asthma [Recovered/Resolved]

NARRATIVE: CASE EVENT DATE: 20140527
